FAERS Safety Report 14777218 (Version 1)
Quarter: 2018Q2

REPORT INFORMATION
  Report Type: Spontaneous
  Country: BR (occurrence: BR)
  Receive Date: 20180419
  Receipt Date: 20180419
  Transmission Date: 20180711
  Serious: Yes (Other)
  Sender: FDA-Public Use
  Company Number: BR-BION-007110

PATIENT
  Sex: Male

DRUGS (3)
  1. CALCITRIOL. [Suspect]
     Active Substance: CALCITRIOL
     Indication: HYPOPHOSPHATAEMIC RICKETS
     Dosage: STRENGTH: 0.25 MICROGRAM?LATER ALSO RECEIVED AT 0.063 AND 0.03 MCG/KG/D
  2. CALCIUM CARBONATE. [Suspect]
     Active Substance: CALCIUM CARBONATE
     Indication: HYPOPHOSPHATAEMIC RICKETS
     Dosage: STRENGTH: 500 MG
  3. CALCIUM PHOSPHATE [Suspect]
     Active Substance: CALCIUM PHOSPHATE
     Indication: HYPOPHOSPHATAEMIC RICKETS
     Dosage: 5 ML:856 MG, IN WHICH 1 ML:34 MG OF PHOSPHORUS AND 63.2 MG OF CALCIUM

REACTIONS (1)
  - Nephrolithiasis [Unknown]
